FAERS Safety Report 16323183 (Version 1)
Quarter: 2019Q2

REPORT INFORMATION
  Report Type: Spontaneous
  Country: DE (occurrence: DE)
  Receive Date: 20190517
  Receipt Date: 20190517
  Transmission Date: 20190711
  Serious: Yes (Other)
  Sender: FDA-Public Use
  Company Number: DE-TEVA-2019-DE-1049856

PATIENT
  Age: 0 Year
  Sex: Female
  Weight: 2.96 kg

DRUGS (1)
  1. LAMOTRIGIN [Suspect]
     Active Substance: LAMOTRIGINE
     Indication: EPILEPSY
     Dosage: 900 [MG/D ]/ AT DELIVERY 900MG/D, DOSAGE REDUCED STEP BY STEP TO 500MG/D
     Route: 063

REACTIONS (1)
  - Thrombocytosis [Recovering/Resolving]
